FAERS Safety Report 8113468 (Version 2)
Quarter: 2013Q2

REPORT INFORMATION
  Report Type: Spontaneous
  Country: US (occurrence: None)
  Receive Date: 20110810
  Receipt Date: 20130313
  Transmission Date: 20140414
  Serious: No
  Sender: FDA-Public Use
  Company Number: 1000020839

PATIENT
  Sex: Female

DRUGS (1)
  1. SAVELLA [Suspect]
     Indication: FIBROMYALGIA
     Dosage: 12.5 (12.5 MG, 1 IN 1 D), ORAL
     Route: 048
     Dates: start: 20110429, end: 20110429

REACTIONS (1)
  - ABDOMINAL PAIN [None]
